FAERS Safety Report 18049811 (Version 3)
Quarter: 2020Q3

REPORT INFORMATION
  Report Type: Report from Study
  Country: IE (occurrence: IE)
  Receive Date: 20200721
  Receipt Date: 20200810
  Transmission Date: 20201103
  Serious: Yes (Hospitalization)
  Sender: FDA-Public Use
  Company Number: IE-ROCHE-2640783

PATIENT
  Age: 50 Year
  Sex: Male
  Weight: 74.5 kg

DRUGS (8)
  1. PROVIGIL (IRELAND) [Concomitant]
     Dosage: AS NEEDED
     Route: 048
     Dates: start: 20170609
  2. ZANAFLEX [Concomitant]
     Active Substance: TIZANIDINE HYDROCHLORIDE
     Dosage: AS NEEDED
     Route: 048
     Dates: start: 20190825
  3. METHYLPREDNISOLONE. [Concomitant]
     Active Substance: METHYLPREDNISOLONE
     Indication: PREMEDICATION
     Dosage: SUBSEQUENT DOSES WERE RECEIVED ON 18/APR/2019, 18/SEP/2019, 09/JUL/2020?ONCE BEFORE INFUSION
     Route: 042
     Dates: start: 20190404, end: 20190404
  4. CHLORPHENAMINE [Concomitant]
     Active Substance: CHLORPHENIRAMINE MALEATE
     Indication: PREMEDICATION
     Dosage: SUBSEQUENT DOSES WERE RECEIVED ON 18/APR/2019, 18/SEP/2019, 09/JUL/2020?ONCE BEFORE INFUSION
     Route: 042
     Dates: start: 20190404, end: 20190404
  5. FAMPYRA [Concomitant]
     Active Substance: DALFAMPRIDINE
     Route: 048
     Dates: start: 20140401
  6. OCRELIZUMAB. [Suspect]
     Active Substance: OCRELIZUMAB
     Indication: PROGRESSIVE MULTIPLE SCLEROSIS
     Dosage: INITIAL DOSE OF TWO 300?MG INFUSIONS SEPARATED BY 14 DAYS (ON DAYS 1 AND 15), AND THEN 600 MG AT EV
     Route: 042
     Dates: start: 20190404
  7. NEUROFEN [Concomitant]
     Active Substance: IBUPROFEN
     Indication: MUSCLE STRAIN
     Dosage: EVERY DAY
     Route: 048
     Dates: start: 20190414
  8. PARACETAMOL [Concomitant]
     Active Substance: ACETAMINOPHEN
     Indication: PREMEDICATION
     Dosage: SUBSEQUENT DOSES WERE RECEIVED ON 18/APR/2019, 18/SEP/2019, 09/JUL/2020?ONCE BEFORE INFUSION
     Route: 048
     Dates: start: 20190404, end: 20190404

REACTIONS (1)
  - Tachycardia [Unknown]

NARRATIVE: CASE EVENT DATE: 20200709
